FAERS Safety Report 20773215 (Version 2)
Quarter: 2022Q2

REPORT INFORMATION
  Report Type: Report from Study
  Country: KR (occurrence: KR)
  Receive Date: 20220502
  Receipt Date: 20220512
  Transmission Date: 20220720
  Serious: Yes (Hospitalization, Other)
  Sender: FDA-Public Use
  Company Number: KR-LUNDBECK-DKLU3047395

PATIENT
  Age: 22 Year
  Sex: Male

DRUGS (3)
  1. VORTIOXETINE [Suspect]
     Active Substance: VORTIOXETINE
     Indication: Major depression
     Dosage: UNK
     Route: 065
     Dates: start: 20211214, end: 20211221
  2. VORTIOXETINE [Suspect]
     Active Substance: VORTIOXETINE
     Indication: Alcohol use disorder
  3. ACAMPROSATE [Concomitant]
     Active Substance: ACAMPROSATE
     Indication: Alcohol use disorder
     Dosage: 660 MILLIGRAM, TID
     Route: 065
     Dates: start: 20211214, end: 20211221

REACTIONS (1)
  - Intentional self-injury [Recovered/Resolved]

NARRATIVE: CASE EVENT DATE: 20211221
